FAERS Safety Report 9094228 (Version 2)
Quarter: 2013Q1

REPORT INFORMATION
  Report Type: Spontaneous
  Country: US (occurrence: US)
  Receive Date: 20130219
  Receipt Date: 20130225
  Transmission Date: 20140127
  Serious: Yes (Hospitalization)
  Sender: FDA-Public Use
  Company Number: US-BAYER-2013-020380

PATIENT
  Age: 24 Year
  Sex: Female

DRUGS (4)
  1. YAZ [Suspect]
     Dosage: UNK
     Dates: start: 200910
  2. YASMIN [Suspect]
     Dosage: UNK
     Dates: start: 200910
  3. BYETTA [Concomitant]
     Dosage: 10 ?G
  4. METFORMIN ER [Concomitant]
     Dosage: 500 MG, UNK
     Route: 048

REACTIONS (5)
  - Pulmonary embolism [Recovering/Resolving]
  - Injury [Recovering/Resolving]
  - Pain [Recovering/Resolving]
  - Fear of disease [None]
  - Pain [None]
